FAERS Safety Report 20864614 (Version 2)
Quarter: 2023Q2

REPORT INFORMATION
  Report Type: Report from Study
  Country: BE (occurrence: BE)
  Receive Date: 20220524
  Receipt Date: 20230426
  Transmission Date: 20230721
  Serious: Yes (Hospitalization, Other)
  Sender: FDA-Public Use
  Company Number: BE-ABBVIE-22K-013-4404781-00

PATIENT
  Age: 60 Year
  Sex: Male

DRUGS (1)
  1. HUMIRA [Suspect]
     Active Substance: ADALIMUMAB
     Indication: Psoriatic arthropathy
     Route: 058
     Dates: start: 20210511, end: 202302

REACTIONS (9)
  - Hypotension [Recovering/Resolving]
  - Pneumonia [Recovered/Resolved]
  - Infectious mononucleosis [Recovered/Resolved]
  - Renal impairment [Recovering/Resolving]
  - Immunodeficiency [Recovered/Resolved]
  - Infection [Recovered/Resolved]
  - Drug ineffective [Recovering/Resolving]
  - Rheumatic disorder [Recovered/Resolved]
  - Rheumatic disorder [Recovering/Resolving]

NARRATIVE: CASE EVENT DATE: 20220514
